FAERS Safety Report 7223053-4 (Version None)
Quarter: 2011Q1

REPORT INFORMATION
  Report Type: 
  Country: None (occurrence: None)
  Receive Date: 20110112
  Receipt Date: 20110110
  Transmission Date: 20110831
  Serious: Yes (Other)
  Sender: FDA-Public Use
  Company Number: CA-MERCK-1101USA00689

PATIENT
  Age: 63 Year
  Sex: Male

DRUGS (1)
  1. ZETIA [Suspect]
     Route: 048

REACTIONS (3)
  - PROSTATOMEGALY [None]
  - RENAL FAILURE [None]
  - OEDEMA [None]
